FAERS Safety Report 5059783-2 (Version None)
Quarter: 2006Q3

REPORT INFORMATION
  Report Type: 
  Country: None (occurrence: None)
  Receive Date: 20060724
  Receipt Date: 20060718
  Transmission Date: 20061208
  Serious: Yes (Congenital Anomaly)
  Sender: FDA-Public Use
  Company Number: US-GLAXOSMITHKLINE-A0612693A

PATIENT
  Sex: Male
  Weight: 2.7 kg

DRUGS (4)
  1. COMBIVIR [Suspect]
     Indication: HIV INFECTION
     Dosage: 1TAB TWICE PER DAY
     Dates: start: 20050818
  2. NEVIRAPINE [Concomitant]
     Indication: HIV INFECTION
     Dosage: 200MG TWICE PER DAY
     Dates: start: 20051223, end: 20060120
  3. KALETRA [Concomitant]
     Indication: HIV INFECTION
     Dosage: 4CAP TWICE PER DAY
     Dates: start: 20050818
  4. AZT [Concomitant]
     Dates: start: 20060120, end: 20060120

REACTIONS (2)
  - CYSTIC FIBROSIS [None]
  - DRUG EXPOSURE DURING PREGNANCY [None]
